FAERS Safety Report 9494011 (Version 2)
Quarter: 2013Q4

REPORT INFORMATION
  Report Type: Spontaneous
  Country: US (occurrence: US)
  Receive Date: 20130903
  Receipt Date: 20131118
  Transmission Date: 20140711
  Serious: Yes (Life-Threatening, Hospitalization)
  Sender: FDA-Public Use
  Company Number: US-BRISTOL-MYERS SQUIBB COMPANY-19231869

PATIENT
  Age: 66 Year
  Sex: Female

DRUGS (3)
  1. YERVOY [Suspect]
     Indication: METASTATIC MALIGNANT MELANOMA
     Dosage: 1DF=1 DOSE.?INJ.228MG
     Route: 042
     Dates: start: 20130813, end: 20130813
  2. PHENERGAN [Concomitant]
     Route: 048
  3. LISINOPRIL [Concomitant]
     Route: 048

REACTIONS (1)
  - Malignant neoplasm progression [Unknown]
